FAERS Safety Report 12366652 (Version 3)
Quarter: 2016Q2

REPORT INFORMATION
  Report Type: Spontaneous
  Country: US (occurrence: US)
  Receive Date: 20160513
  Receipt Date: 20160627
  Transmission Date: 20160815
  Serious: Yes (Hospitalization, Other)
  Sender: FDA-Public Use
  Company Number: US-OTSUKA-2016_010172

PATIENT
  Age: 42 Year
  Sex: Female

DRUGS (1)
  1. ABILIFY MAINTENA [Suspect]
     Active Substance: ARIPIPRAZOLE
     Indication: PRODUCT USED FOR UNKNOWN INDICATION
     Dosage: 45 MG, QD
     Route: 030

REACTIONS (6)
  - Parkinson^s disease [Not Recovered/Not Resolved]
  - Contusion [Unknown]
  - Visual impairment [Unknown]
  - Hormone level abnormal [Unknown]
  - Incorrect dose administered [Unknown]
  - Hospitalisation [Unknown]
